FAERS Safety Report 6155390-9 (Version None)
Quarter: 2009Q2

REPORT INFORMATION
  Report Type: 
  Country: None (occurrence: None)
  Receive Date: 20090413
  Receipt Date: 20090413
  Transmission Date: 20091009
  Serious: Yes (Hospitalization)
  Sender: FDA-Public Use
  Company Number: None

PATIENT
  Age: 47 Year
  Sex: Female
  Weight: 64.5 kg

DRUGS (1)
  1. SOLIRIS [Suspect]
     Indication: PROPHYLAXIS AGAINST TRANSPLANT REJECTION
     Dosage: 1200 MG ONCE IV 600 MG FOUR IV
     Route: 042

REACTIONS (5)
  - DEHYDRATION [None]
  - HEADACHE [None]
  - HYPERCALCAEMIA [None]
  - NAUSEA [None]
  - PARATHYROID DISORDER [None]
